FAERS Safety Report 22260943 (Version 2)
Quarter: 2023Q2

REPORT INFORMATION
  Report Type: Spontaneous
  Country: TW (occurrence: TW)
  Receive Date: 20230427
  Receipt Date: 20230508
  Transmission Date: 20230722
  Serious: Yes (Other)
  Sender: FDA-Public Use
  Company Number: TW-APIL-2312834US

PATIENT
  Sex: Male
  Weight: 65 kg

DRUGS (30)
  1. OZURDEX [Suspect]
     Active Substance: DEXAMETHASONE
     Indication: Product used for unknown indication
     Dosage: 0.7 UNITS, SINGLE
     Route: 031
     Dates: start: 20220218, end: 20220218
  2. OZURDEX [Suspect]
     Active Substance: DEXAMETHASONE
     Indication: Product used for unknown indication
     Dosage: 0.7 MG, SINGLE
     Route: 031
     Dates: start: 20220520, end: 20220520
  3. OZURDEX [Suspect]
     Active Substance: DEXAMETHASONE
     Indication: Product used for unknown indication
     Dosage: 0.7 MG, SINGLE
     Route: 031
     Dates: start: 20220819, end: 20220819
  4. ALPHAGAN P [Concomitant]
     Active Substance: BRIMONIDINE TARTRATE
     Indication: Glaucoma
     Dosage: 1 GTT, BID
     Dates: start: 20221111
  5. ALPHAGAN P [Concomitant]
     Active Substance: BRIMONIDINE TARTRATE
     Dosage: 1 GTT, BID
     Dates: start: 20220318, end: 20220923
  6. AZARGA [Concomitant]
     Active Substance: BRINZOLAMIDE\TIMOLOL MALEATE
     Indication: Glaucoma
     Dosage: 1 GTT, BID
     Dates: start: 20220715, end: 20220923
  7. MANNITOL [Concomitant]
     Active Substance: MANNITOL
     Indication: Glaucoma
     Dosage: UNK
     Dates: start: 20221209, end: 20221209
  8. MANNITOL [Concomitant]
     Active Substance: MANNITOL
     Dosage: UNK
     Dates: start: 20221125, end: 20221125
  9. MANNITOL [Concomitant]
     Active Substance: MANNITOL
     Dosage: UNK
     Dates: start: 20221111, end: 20221111
  10. MANNITOL [Concomitant]
     Active Substance: MANNITOL
     Dosage: UNK
     Dates: start: 20221104, end: 20221104
  11. MANNITOL [Concomitant]
     Active Substance: MANNITOL
     Dosage: UNK
     Dates: start: 20221028, end: 20221028
  12. MANNITOL [Concomitant]
     Active Substance: MANNITOL
     Dosage: UNK
     Dates: start: 20221014, end: 20221014
  13. MANNITOL [Concomitant]
     Active Substance: MANNITOL
     Dosage: UNK
     Dates: start: 20221007, end: 20221007
  14. MANNITOL [Concomitant]
     Active Substance: MANNITOL
     Dosage: UNK
     Dates: start: 20220923, end: 20220923
  15. ACETAZOLAMIDE [Concomitant]
     Active Substance: ACETAZOLAMIDE
     Indication: Glaucoma
     Dosage: UNK, QID
     Dates: start: 20220923
  16. TIMOLOL [Concomitant]
     Active Substance: TIMOLOL
     Indication: Glaucoma
     Dosage: 1 GTT, BID
     Dates: start: 20221104
  17. TIMOLOL [Concomitant]
     Active Substance: TIMOLOL
     Dosage: 1 GTT, BID
     Dates: start: 20221021, end: 20221028
  18. TIMOLOL [Concomitant]
     Active Substance: TIMOLOL
     Dosage: 1 GTT
     Dates: start: 20220923, end: 20221007
  19. DORZOLAMIDE [DORZOLAMIDE HYDROCHLORIDE] [Concomitant]
     Indication: Glaucoma
     Dosage: 1 GTT, QD
     Dates: start: 20221125
  20. DORZOLAMIDE [DORZOLAMIDE HYDROCHLORIDE] [Concomitant]
     Dosage: 1 GTT
     Dates: start: 20221021, end: 20221028
  21. DORZOLAMIDE [DORZOLAMIDE HYDROCHLORIDE] [Concomitant]
     Dosage: 1 GTT, QID
     Dates: start: 20220923, end: 20221007
  22. SIMBRINZA [Concomitant]
     Active Substance: BRIMONIDINE TARTRATE\BRINZOLAMIDE
     Indication: Glaucoma
     Dosage: 1 GTT, BID
     Dates: start: 20221111
  23. SIMBRINZA [Concomitant]
     Active Substance: BRIMONIDINE TARTRATE\BRINZOLAMIDE
     Dosage: 1 GTT, BID
     Dates: start: 20221028, end: 20221104
  24. ISOSORBIDE [Concomitant]
     Active Substance: ISOSORBIDE
     Indication: Glaucoma
     Dosage: 10 ML, TID
     Dates: start: 20221104
  25. BIMATOPROST [Concomitant]
     Active Substance: BIMATOPROST
     Indication: Glaucoma
     Dosage: 1 GTT
     Dates: start: 20221208
  26. CARBOMER [Concomitant]
     Active Substance: CARBOMER
     Indication: Glaucoma
     Dosage: UNK, BID
     Dates: start: 20221222
  27. TIMOLOL MALEATE\TRAVOPROST [Concomitant]
     Active Substance: TIMOLOL MALEATE\TRAVOPROST
     Indication: Glaucoma
     Dosage: 1 GTT, BID
     Dates: start: 20221212
  28. TEARS [HYALURONATE SODIUM] [Concomitant]
     Indication: Glaucoma
     Dosage: 1 GTT, QID
     Dates: start: 20221212
  29. AMOXICILLIN\CLAVULANIC ACID [Concomitant]
     Active Substance: AMOXICILLIN\CLAVULANIC ACID
     Indication: Glaucoma
     Dosage: UNK, Q12H
     Dates: start: 20230119
  30. TETRACYCLINE HYDROCHLORIDE [Concomitant]
     Active Substance: TETRACYCLINE HYDROCHLORIDE
     Indication: Glaucoma
     Dosage: UNK, QHS
     Dates: start: 20230119

REACTIONS (2)
  - Intraocular pressure increased [Recovered/Resolved with Sequelae]
  - Vision blurred [Not Recovered/Not Resolved]

NARRATIVE: CASE EVENT DATE: 20220318
